FAERS Safety Report 15564243 (Version 7)
Quarter: 2019Q3

REPORT INFORMATION
  Report Type: Spontaneous
  Country: CA (occurrence: CA)
  Receive Date: 20181030
  Receipt Date: 20190805
  Transmission Date: 20191004
  Serious: Yes (Life-Threatening, Hospitalization, Other)
  Sender: FDA-Public Use
  Company Number: CA-ROCHE-2205506

PATIENT
  Age: 81 Year
  Sex: Female

DRUGS (6)
  1. XOLAIR [Suspect]
     Active Substance: OMALIZUMAB
     Route: 058
     Dates: start: 20180405, end: 20180412
  2. REACTINE [CETIRIZINE HYDROCHLORIDE] [Concomitant]
     Active Substance: CETIRIZINE HYDROCHLORIDE
     Indication: ANGIOEDEMA
     Route: 048
  3. XOLAIR [Suspect]
     Active Substance: OMALIZUMAB
     Route: 058
     Dates: start: 2018
  4. PREDNISONE. [Concomitant]
     Active Substance: PREDNISONE
     Indication: PRODUCT USED FOR UNKNOWN INDICATION
     Route: 048
  5. XOLAIR [Suspect]
     Active Substance: OMALIZUMAB
     Indication: ANGIOEDEMA
     Route: 058
     Dates: start: 20171026
  6. RUPALL [Concomitant]
     Active Substance: RUPATADINE FUMARATE
     Indication: PRODUCT USED FOR UNKNOWN INDICATION
     Route: 065

REACTIONS (16)
  - Off label use [Unknown]
  - Pruritus [Not Recovered/Not Resolved]
  - Syncope [Recovering/Resolving]
  - Idiopathic angioedema [Unknown]
  - Dry skin [Recovering/Resolving]
  - Fall [Unknown]
  - Angioedema [Recovering/Resolving]
  - Malaise [Unknown]
  - Insomnia [Unknown]
  - Burning sensation [Recovering/Resolving]
  - Product use in unapproved indication [Unknown]
  - Swollen tongue [Not Recovered/Not Resolved]
  - Dementia [Unknown]
  - Blister [Recovering/Resolving]
  - Oedema [Not Recovered/Not Resolved]
  - Urticaria [Not Recovered/Not Resolved]

NARRATIVE: CASE EVENT DATE: 20180412
